FAERS Safety Report 8818697 (Version 2)
Quarter: 2012Q4

REPORT INFORMATION
  Report Type: 
  Country: US (occurrence: US)
  Receive Date: 20121001
  Receipt Date: 20121009
  Transmission Date: 20130627
  Serious: Yes (Other)
  Sender: FDA-Public Use
  Company Number: US-TEVA-361064USA

PATIENT
  Age: 63 Year
  Sex: Female
  Weight: 56.3 kg

DRUGS (5)
  1. PROAIR HFA [Suspect]
     Indication: BRONCHOSPASM
     Dosage: 1 puff q4 hours PRN
     Dates: start: 20120711
  2. VENTOLIN [Concomitant]
     Indication: BRONCHOSPASM
  3. ALBUTEROL SULFATE [Concomitant]
     Indication: BRONCHOSPASM
     Dosage: 1 vial q6-8 hours prn
     Dates: start: 20120918
  4. SINGULAIR [Concomitant]
     Indication: BRONCHOSPASM
     Dosage: daily
  5. SINGULAIR [Concomitant]
     Indication: HYPERSENSITIVITY

REACTIONS (4)
  - Bronchospasm [Not Recovered/Not Resolved]
  - Oxygen saturation decreased [Not Recovered/Not Resolved]
  - Anaphylactic reaction [Unknown]
  - Respiratory tract infection [Unknown]
